FAERS Safety Report 14376967 (Version 2)
Quarter: 2018Q1

REPORT INFORMATION
  Report Type: Spontaneous
  Country: US (occurrence: US)
  Receive Date: 20180111
  Receipt Date: 20180111
  Transmission Date: 20180509
  Serious: No
  Sender: FDA-Public Use
  Company Number: US-DRREDDYS-USA/USA/16/0085864

PATIENT
  Sex: Female
  Weight: 52.16 kg

DRUGS (3)
  1. HABITROL [Suspect]
     Active Substance: NICOTINE
     Indication: SMOKING CESSATION THERAPY
     Route: 061
  2. HABITROL [Suspect]
     Active Substance: NICOTINE
     Route: 061
     Dates: start: 20161208
  3. XANAX [Concomitant]
     Active Substance: ALPRAZOLAM
     Indication: PRODUCT USED FOR UNKNOWN INDICATION
     Route: 065

REACTIONS (7)
  - Dysgeusia [Recovered/Resolved]
  - Sleep disorder [Unknown]
  - Overdose [Unknown]
  - Nicotine dependence [Unknown]
  - Drug dose omission [Unknown]
  - Product adhesion issue [Unknown]
  - Treatment noncompliance [Unknown]
